FAERS Safety Report 14531990 (Version 4)
Quarter: 2018Q4

REPORT INFORMATION
  Report Type: Report from Study
  Country: JP (occurrence: JP)
  Receive Date: 20180214
  Receipt Date: 20181231
  Transmission Date: 20190204
  Serious: Yes (Death, Life-Threatening, Hospitalization, Other)
  Sender: FDA-Public Use
  Company Number: JP-BAUSCH-BL-2018-004276

PATIENT
  Age: 61 Year
  Sex: Male
  Weight: 51 kg

DRUGS (13)
  1. LUMICEF [Suspect]
     Active Substance: BRODALUMAB
     Route: 058
     Dates: start: 20171017, end: 20171226
  2. POLAPREZINC [Concomitant]
     Active Substance: POLAPREZINC
     Indication: PRODUCT USED FOR UNKNOWN INDICATION
     Route: 048
     Dates: start: 20171215, end: 20180109
  3. LUMICEF [Suspect]
     Active Substance: BRODALUMAB
     Indication: PSORIASIS
     Route: 058
     Dates: start: 20170912, end: 20170926
  4. NIZORAL [Concomitant]
     Active Substance: KETOCONAZOLE
     Indication: PRODUCT USED FOR UNKNOWN INDICATION
     Dosage: CREAM
     Route: 061
     Dates: start: 20171128, end: 20171212
  5. LORAZEPAM. [Concomitant]
     Active Substance: LORAZEPAM
     Indication: INSOMNIA
     Dosage: AS NEEDED
     Route: 048
     Dates: start: 20171213, end: 20180123
  6. LULICON [Concomitant]
     Active Substance: LULICONAZOLE
     Indication: PRODUCT USED FOR UNKNOWN INDICATION
     Dosage: CREAM
     Route: 061
     Dates: start: 20170919, end: 20171017
  7. TALION [Concomitant]
     Indication: PRODUCT USED FOR UNKNOWN INDICATION
     Route: 048
     Dates: start: 20171017, end: 20180123
  8. REMITCH OD [Concomitant]
     Indication: PRODUCT USED FOR UNKNOWN INDICATION
     Dosage: 2.5 MICROGRAM
     Route: 048
     Dates: start: 20171124, end: 20180123
  9. BELSOMRA [Suspect]
     Active Substance: SUVOREXANT
     Indication: INSOMNIA
     Route: 048
     Dates: start: 20171128, end: 20171205
  10. HEPARINOID [Concomitant]
     Active Substance: CHONDROITIN SULFATE (BOVINE)
     Indication: ASTEATOSIS
     Dosage: SPRAY (EXCEPT INHALATION)
     Route: 061
     Dates: start: 20171114, end: 20180123
  11. IXEKIZUMAB [Suspect]
     Active Substance: IXEKIZUMAB
     Indication: PSORIASIS
     Route: 058
     Dates: end: 20170822
  12. FLORID [Concomitant]
     Active Substance: MICONAZOLE
     Indication: ORAL CANDIDIASIS
     Dosage: 10 GRAMS
     Route: 048
     Dates: start: 20170912, end: 20170916
  13. LUNESTA [Concomitant]
     Active Substance: ESZOPICLONE
     Indication: INSOMNIA
     Route: 048
     Dates: start: 20171215, end: 20180123

REACTIONS (7)
  - Oesophageal varices haemorrhage [Fatal]
  - Zinc deficiency [Recovering/Resolving]
  - Genital candidiasis [Recovered/Resolved]
  - Suicidal ideation [Recovering/Resolving]
  - Pruritus [Recovering/Resolving]
  - Oesophageal varices haemorrhage [Recovering/Resolving]
  - Oral candidiasis [Recovered/Resolved]

NARRATIVE: CASE EVENT DATE: 20170919
